FAERS Safety Report 15225460 (Version 2)
Quarter: 2018Q3

REPORT INFORMATION
  Report Type: Spontaneous
  Country: US (occurrence: US)
  Receive Date: 20180801
  Receipt Date: 20180925
  Transmission Date: 20181010
  Serious: Yes (Hospitalization)
  Sender: FDA-Public Use
  Company Number: US-AMGEN-USASP2018103698

PATIENT
  Age: 83 Year
  Sex: Female
  Weight: 60.77 kg

DRUGS (2)
  1. REPATHA [Suspect]
     Active Substance: EVOLOCUMAB
     Indication: TYPE V HYPERLIPIDAEMIA
  2. REPATHA [Suspect]
     Active Substance: EVOLOCUMAB
     Indication: PROPHYLAXIS
     Dosage: 140 MG, UNK
     Route: 058
     Dates: start: 20180712, end: 20180713

REACTIONS (6)
  - Hypoaesthesia [Recovering/Resolving]
  - Myalgia [Recovered/Resolved]
  - Back pain [Recovered/Resolved]
  - Feeling abnormal [Recovering/Resolving]
  - Arthralgia [Recovered/Resolved]
  - Pain [Recovering/Resolving]

NARRATIVE: CASE EVENT DATE: 2018
